FAERS Safety Report 18994350 (Version 1)
Quarter: 2021Q1

REPORT INFORMATION
  Report Type: Spontaneous
  Country: FI (occurrence: FI)
  Receive Date: 20210311
  Receipt Date: 20210311
  Transmission Date: 20210420
  Serious: Yes (Other)
  Sender: FDA-Public Use
  Company Number: FI-ROCHE-2783823

PATIENT
  Sex: Female

DRUGS (1)
  1. ALECENSA [Suspect]
     Active Substance: ALECTINIB HYDROCHLORIDE
     Indication: LUNG NEOPLASM MALIGNANT
     Route: 065

REACTIONS (10)
  - Oesophageal neoplasm [Unknown]
  - Oxygen consumption decreased [Unknown]
  - Chest pain [Unknown]
  - Dyspnoea [Unknown]
  - Muscular weakness [Unknown]
  - Cough [Unknown]
  - Taste disorder [Unknown]
  - Dysphagia [Unknown]
  - Anxiety [Unknown]
  - Radiation injury [Unknown]
